FAERS Safety Report 6540728-0 (Version None)
Quarter: 2010Q1

REPORT INFORMATION
  Report Type: 
  Country: None (occurrence: None)
  Receive Date: 20100118
  Receipt Date: 20100112
  Transmission Date: 20100710
  Serious: Yes (Other)
  Sender: FDA-Public Use
  Company Number: US-ELI_LILLY_AND_COMPANY-US200910003237

PATIENT
  Sex: Female

DRUGS (5)
  1. FORTEO [Suspect]
     Indication: OSTEOPOROSIS
     Dosage: UNK, UNK
     Dates: start: 20091006, end: 20101016
  2. CALCIUM [Concomitant]
     Dosage: 1 D/F, DAILY (1/D)
  3. VITAMINS [Concomitant]
     Dosage: 1 D/F, DAILY (1/D)
  4. MAGNESIUM [Concomitant]
     Dosage: 1 D/F, DAILY (1/D)
  5. TYLENOL (CAPLET) [Concomitant]
     Indication: PAIN
     Dosage: UNK, AS NEEDED

REACTIONS (2)
  - DERMATITIS ALLERGIC [None]
  - INJECTION SITE ERYTHEMA [None]
